FAERS Safety Report 6057439-0 (Version None)
Quarter: 2009Q1

REPORT INFORMATION
  Report Type: 
  Country: None (occurrence: None)
  Receive Date: 20090129
  Receipt Date: 20090122
  Transmission Date: 20090719
  Serious: Yes (Hospitalization, Disabling)
  Sender: FDA-Public Use
  Company Number: JP-BAYER-200910240BYL

PATIENT
  Age: 67 Year
  Sex: Male
  Weight: 50 kg

DRUGS (4)
  1. NEXAVAR [Suspect]
     Indication: RENAL CELL CARCINOMA STAGE IV
     Dosage: UNIT DOSE: 200 MG
     Route: 048
     Dates: start: 20080814, end: 20080824
  2. URSO 250 [Concomitant]
     Route: 048
     Dates: start: 20080811, end: 20081107
  3. BUP-4 [Concomitant]
     Route: 048
     Dates: start: 20080811, end: 20080824
  4. HARNAL D [Concomitant]
     Route: 048
     Dates: start: 20080811

REACTIONS (3)
  - DIARRHOEA [None]
  - MONOPLEGIA [None]
  - URINARY RETENTION [None]
